FAERS Safety Report 14424466 (Version 1)
Quarter: 2018Q1

REPORT INFORMATION
  Report Type: Spontaneous
  Country: AU (occurrence: AU)
  Receive Date: 20180122
  Receipt Date: 20180122
  Transmission Date: 20180509
  Serious: Yes (Disabling)
  Sender: FDA-Public Use
  Company Number: None

PATIENT
  Age: 18 Year
  Sex: Female
  Weight: 62 kg

DRUGS (2)
  1. MIRENA [Suspect]
     Active Substance: LEVONORGESTREL
  2. CONTRACEPTIVE PILL [Concomitant]

REACTIONS (4)
  - Vulvovaginal swelling [None]
  - Cyst rupture [None]
  - Vulvovaginal discomfort [None]
  - Vulvovaginal burning sensation [None]

NARRATIVE: CASE EVENT DATE: 20180121
